FAERS Safety Report 6027476-0 (Version None)
Quarter: 2009Q1

REPORT INFORMATION
  Report Type: 
  Country: None (occurrence: None)
  Receive Date: 20090105
  Receipt Date: 20081223
  Transmission Date: 20090719
  Serious: Yes (Other)
  Sender: FDA-Public Use
  Company Number: BR-PFIZER INC-2009150009

PATIENT

DRUGS (2)
  1. XALATAN [Suspect]
     Indication: GLAUCOMA
     Dosage: 3 UG, 1X/DAY
     Route: 047
     Dates: start: 20050101
  2. ATENOLOL [Concomitant]
     Dosage: UNK

REACTIONS (3)
  - EYE ALLERGY [None]
  - EYE PAIN [None]
  - SPINAL OPERATION [None]
